FAERS Safety Report 6370135-5 (Version None)
Quarter: 2009Q3

REPORT INFORMATION
  Report Type: 
  Country: None (occurrence: None)
  Receive Date: 20090923
  Receipt Date: 20071217
  Transmission Date: 20100115
  Serious: No
  Sender: FDA-Public Use
  Company Number: US-ASTRAZENECA-2006UW22312

PATIENT
  Age: 580 Month
  Sex: Male
  Weight: 93.4 kg

DRUGS (9)
  1. SEROQUEL [Suspect]
     Indication: INSOMNIA
     Dosage: 25 MG - 100 MG
     Route: 048
     Dates: start: 20030201, end: 20031001
  2. SEROQUEL [Suspect]
     Indication: SCHIZOPHRENIA
     Dosage: 25 MG - 100 MG
     Route: 048
     Dates: start: 20030201, end: 20031001
  3. ABILIFY [Concomitant]
     Route: 065
  4. RISPERDAL [Concomitant]
     Route: 065
  5. DEPAKOTE [Concomitant]
     Route: 065
  6. LISINOPRIL [Concomitant]
     Route: 065
  7. LEVAQUIN [Concomitant]
     Route: 048
  8. VICODIN [Concomitant]
     Route: 065
  9. METFORMIN HCL [Concomitant]
     Route: 065

REACTIONS (3)
  - ACARODERMATITIS [None]
  - DIABETES MELLITUS [None]
  - FURUNCLE [None]
